FAERS Safety Report 22067293 (Version 1)
Quarter: 2023Q1

REPORT INFORMATION
  Report Type: Report from Study
  Country: CA (occurrence: CA)
  Receive Date: 20230307
  Receipt Date: 20230307
  Transmission Date: 20230418
  Serious: Yes (Other)
  Sender: FDA-Public Use
  Company Number: CA-CELLTRION INC.-2023CA004798

PATIENT

DRUGS (3)
  1. TRUXIMA [Suspect]
     Active Substance: RITUXIMAB-ABBS
     Indication: Rheumatoid arthritis
     Dosage: 1000 MG, INF #10
     Route: 042
     Dates: start: 20201006
  2. BENADRYL [Concomitant]
     Active Substance: DIPHENHYDRAMINE HYDROCHLORIDE
     Indication: Premedication
     Dosage: 50 MG
     Route: 048
  3. SOLU-MEDROL [Concomitant]
     Active Substance: METHYLPREDNISOLONE SODIUM SUCCINATE
     Indication: Premedication
     Dosage: 100 MG
     Route: 042

REACTIONS (7)
  - Malignant melanoma [Unknown]
  - COVID-19 [Unknown]
  - Asthma [Unknown]
  - Somnolence [Unknown]
  - Oedema [Recovering/Resolving]
  - Infusion site extravasation [Unknown]
  - Fatigue [Unknown]

NARRATIVE: CASE EVENT DATE: 20230228
